FAERS Safety Report 8822689 (Version 2)
Quarter: 2012Q4

REPORT INFORMATION
  Report Type: Report from Study
  Country: DE (occurrence: DE)
  Receive Date: 20121003
  Receipt Date: 20121120
  Transmission Date: 20130627
  Serious: Yes (Other)
  Sender: FDA-Public Use
  Company Number: DE-BRISTOL-MYERS SQUIBB COMPANY-16548497

PATIENT
  Sex: Female

DRUGS (1)
  1. IPILIMUMAB [Suspect]
     Indication: MALIGNANT MELANOMA
     Dosage: 1 st cycle,23Nov2011:2ndcycle,14Dec2011:3rd cycle.
     Dates: start: 20111102

REACTIONS (4)
  - Malignant neoplasm progression [Unknown]
  - Hypophysitis [Recovering/Resolving]
  - Dermatomyositis [Recovering/Resolving]
  - Pulmonary embolism [Unknown]
